FAERS Safety Report 24557889 (Version 1)
Quarter: 2024Q4

REPORT INFORMATION
  Report Type: Spontaneous
  Country: US (occurrence: US)
  Receive Date: 20241028
  Receipt Date: 20241028
  Transmission Date: 20250115
  Serious: No
  Sender: Haleon PLC
  Company Number: US-HALEON-2205110

PATIENT

DRUGS (1)
  1. ALLI [Suspect]
     Active Substance: ORLISTAT
     Indication: Weight decreased

REACTIONS (4)
  - Constipation [Unknown]
  - Abdominal distension [Unknown]
  - Flatulence [Unknown]
  - Abdominal pain upper [Unknown]
